FAERS Safety Report 4342528-9 (Version None)
Quarter: 2004Q2

REPORT INFORMATION
  Report Type: 
  Country: None (occurrence: None)
  Receive Date: 20040420
  Receipt Date: 20040416
  Transmission Date: 20050107
  Serious: Yes (Life-Threatening)
  Sender: FDA-Public Use
  Company Number: 7818

PATIENT
  Sex: Male

DRUGS (1)
  1. PAMIDRONATE DISODIUM [Suspect]
     Indication: METASTASES TO BONE
     Dosage: 60 MG FREQ IV
     Route: 042

REACTIONS (4)
  - HYPERTENSION [None]
  - PULMONARY OEDEMA [None]
  - PYREXIA [None]
  - TACHYCARDIA [None]
